FAERS Safety Report 5085966-1 (Version None)
Quarter: 2006Q3

REPORT INFORMATION
  Report Type: 
  Country: None (occurrence: None)
  Receive Date: 20060817
  Receipt Date: 20060803
  Transmission Date: 20061208
  Serious: Yes (Hospitalization)
  Sender: FDA-Public Use
  Company Number: 2006097251

PATIENT
  Age: 35 Year
  Sex: Female

DRUGS (5)
  1. ATARAX [Suspect]
     Indication: URTICARIA
     Dosage: 25 MG, ORAL
     Route: 048
  2. LEVOCETIRIZINE DIHYDROCHLORIDE [Suspect]
     Indication: URTICARIA
     Dosage: 15 MG, ORAL
     Route: 048
  3. TRAMADOL HCL [Suspect]
     Indication: PAIN
     Dosage: SEE IMAGE
     Route: 030
     Dates: start: 20060624, end: 20060624
  4. TRAMADOL HCL [Suspect]
     Indication: PAIN
     Dosage: SEE IMAGE
     Route: 030
     Dates: start: 20060624
  5. PANTOPRAZOLE SODIUM [Concomitant]

REACTIONS (4)
  - DRUG TOXICITY [None]
  - SOMNOLENCE [None]
  - TRISMUS [None]
  - URTICARIA [None]
